FAERS Safety Report 17691450 (Version 1)
Quarter: 2020Q2

REPORT INFORMATION
  Report Type: Spontaneous
  Country: US (occurrence: US)
  Receive Date: 20200422
  Receipt Date: 20200422
  Transmission Date: 20200714
  Serious: No
  Sender: FDA-Public Use
  Company Number: US-JNJFOC-20200345370

PATIENT
  Sex: Male

DRUGS (1)
  1. PEPCID AC [Suspect]
     Active Substance: FAMOTIDINE
     Indication: NEOPLASM MALIGNANT
     Route: 048

REACTIONS (2)
  - Therapeutic response unexpected [Unknown]
  - Product use in unapproved indication [Unknown]
